FAERS Safety Report 20784380 (Version 1)
Quarter: 2022Q2

REPORT INFORMATION
  Report Type: Report from Study
  Country: GB (occurrence: GB)
  Receive Date: 20220504
  Receipt Date: 20220504
  Transmission Date: 20220721
  Serious: Yes (Other)
  Sender: FDA-Public Use
  Company Number: GB-TAKEDA-2022TUS028525

PATIENT
  Age: 8 Year
  Sex: Male
  Weight: 29.6 kg

DRUGS (8)
  1. ADVATE [Suspect]
     Active Substance: ANTIHEMOPHILIC FACTOR, HUMAN RECOMBINANT
     Indication: Prophylaxis
     Dosage: 1500 INTERNATIONAL UNIT
     Route: 042
     Dates: start: 20120509
  2. ADVATE [Suspect]
     Active Substance: ANTIHEMOPHILIC FACTOR, HUMAN RECOMBINANT
     Indication: Prophylaxis
     Dosage: 1500 INTERNATIONAL UNIT
     Route: 042
     Dates: start: 20120509
  3. ADVATE [Suspect]
     Active Substance: ANTIHEMOPHILIC FACTOR, HUMAN RECOMBINANT
     Indication: Prophylaxis
     Dosage: 1500 INTERNATIONAL UNIT
     Route: 042
     Dates: start: 20120509
  4. TRANEXAMIC ACID [Concomitant]
     Active Substance: TRANEXAMIC ACID
     Indication: Dental disorder prophylaxis
     Dosage: 500 MILLIGRAM, TID
     Route: 065
     Dates: start: 20130123, end: 20130126
  5. CALPOL [Concomitant]
     Active Substance: ACETAMINOPHEN
     Indication: Nasopharyngitis
     Dosage: 5 MILLILITER
     Route: 065
     Dates: start: 20140608, end: 20140612
  6. FENTANYL [Concomitant]
     Active Substance: FENTANYL
     Indication: Central venous catheter removal
     Dosage: 30 MICROGRAM, BID
     Route: 065
     Dates: start: 20141023, end: 20141023
  7. ONDANSETRON [Concomitant]
     Active Substance: ONDANSETRON
     Indication: Central venous catheter removal
     Dosage: 4 MILLIGRAM
     Route: 065
     Dates: start: 20141023, end: 20141023
  8. PROPOFOL [Concomitant]
     Active Substance: PROPOFOL
     Indication: Central venous catheter removal
     Dosage: 10 MILLIGRAM, ONCE
     Route: 065
     Dates: start: 20141023, end: 20141023

REACTIONS (1)
  - Central venous catheter removal [Recovered/Resolved]

NARRATIVE: CASE EVENT DATE: 20141023
